FAERS Safety Report 12187688 (Version 1)
Quarter: 2016Q1

REPORT INFORMATION
  Report Type: Spontaneous
  Country: US (occurrence: None)
  Receive Date: 20160316
  Receipt Date: 20160316
  Transmission Date: 20160526
  Serious: No
  Sender: FDA-Public Use
  Company Number: None

PATIENT
  Age: 14 Year
  Sex: Female
  Weight: 59.7 kg

DRUGS (8)
  1. OMEPRAZOLE. [Concomitant]
     Active Substance: OMEPRAZOLE
  2. VANCOMYCIN [Concomitant]
     Active Substance: VANCOMYCIN
  3. FUROSEMIDE. [Suspect]
     Active Substance: FUROSEMIDE
     Indication: POLYURIA
  4. LEVOFLOXACIN. [Concomitant]
     Active Substance: LEVOFLOXACIN
  5. ENOXAPARIN [Concomitant]
     Active Substance: ENOXAPARIN
  6. CEFTRIAXONE. [Concomitant]
     Active Substance: CEFTRIAXONE
  7. LACTOBACILLUS [Concomitant]
     Active Substance: LACTOBACILLUS ACIDOPHILUS
  8. RANITIDINE [Concomitant]
     Active Substance: RANITIDINE\RANITIDINE HYDROCHLORIDE

REACTIONS (4)
  - Tachypnoea [None]
  - Conductive deafness [None]
  - Pneumonia [None]
  - Deafness [None]

NARRATIVE: CASE EVENT DATE: 20160209
